FAERS Safety Report 10614531 (Version 1)
Quarter: 2014Q4

REPORT INFORMATION
  Report Type: Spontaneous
  Country: JP (occurrence: JP)
  Receive Date: 20141130
  Receipt Date: 20141130
  Transmission Date: 20150529
  Serious: Yes (Death)
  Sender: FDA-Public Use
  Company Number: PHHY2014JP155964

PATIENT
  Age: 70 Year
  Sex: Male

DRUGS (1)
  1. ONBREZ [Suspect]
     Active Substance: INDACATEROL
     Indication: CHRONIC OBSTRUCTIVE PULMONARY DISEASE
     Dosage: 150 UG, QD
     Route: 055
     Dates: start: 20141015

REACTIONS (1)
  - Aortic rupture [Fatal]

NARRATIVE: CASE EVENT DATE: 201411
